FAERS Safety Report 4548177-1 (Version None)
Quarter: 2005Q1

REPORT INFORMATION
  Report Type: 
  Country: None (occurrence: None)
  Receive Date: 20050110
  Receipt Date: 20041206
  Transmission Date: 20050727
  Serious: Yes (Hospitalization)
  Sender: FDA-Public Use
  Company Number: 200413725JP

PATIENT
  Age: 71 Year
  Sex: Female
  Weight: 62 kg

DRUGS (9)
  1. KETEK [Suspect]
     Indication: BRONCHITIS
     Route: 048
     Dates: start: 20041130, end: 20041130
  2. KETEK [Suspect]
     Indication: PHARYNGITIS
     Route: 048
     Dates: start: 20041130, end: 20041130
  3. BROCIN [Concomitant]
     Indication: BRONCHITIS
     Route: 048
     Dates: start: 20041122, end: 20041130
  4. APRICOT KERNEL WATER [Concomitant]
     Indication: BRONCHITIS
     Route: 048
     Dates: start: 20041122, end: 20041130
  5. SENEGA [Concomitant]
     Indication: BRONCHITIS
     Route: 048
     Dates: start: 20041122, end: 20041130
  6. HUSCODE [Concomitant]
     Indication: BRONCHITIS
     Route: 048
     Dates: start: 20041122, end: 20041130
  7. FLOMOX [Concomitant]
     Indication: BRONCHITIS
     Route: 048
     Dates: start: 20041122, end: 20041129
  8. VOLTAREN [Concomitant]
     Indication: BRONCHITIS
     Route: 048
     Dates: start: 20041122, end: 20041129
  9. ISEPACIN [Concomitant]
     Indication: BRONCHITIS
     Route: 041
     Dates: start: 20041124, end: 20041126

REACTIONS (9)
  - ABASIA [None]
  - ANOREXIA [None]
  - CHILLS [None]
  - DIZZINESS [None]
  - EYE DISORDER [None]
  - NAUSEA [None]
  - SHOCK [None]
  - TREMOR [None]
  - VOMITING [None]
